FAERS Safety Report 4772437-2 (Version None)
Quarter: 2005Q3

REPORT INFORMATION
  Report Type: 
  Country: None (occurrence: None)
  Receive Date: 20050914
  Receipt Date: 20050912
  Transmission Date: 20060218
  Serious: Yes (Other)
  Sender: FDA-Public Use
  Company Number: GB-2005-016909

PATIENT
  Age: 41 Year
  Sex: Female

DRUGS (3)
  1. LEVONORGESTREL [Suspect]
     Indication: POST COITAL CONTRACEPTION
     Dosage: 2 DOSES  ORAL
     Route: 048
     Dates: start: 20050613, end: 20050613
  2. LORATADINE [Concomitant]
  3. SERTRALINE HCL [Concomitant]

REACTIONS (4)
  - BODY MASS INDEX INCREASED [None]
  - DRUG EXPOSURE DURING PREGNANCY [None]
  - GENITAL HAEMORRHAGE [None]
  - PREGNANCY AFTER POST COITAL CONTRACEPTION [None]
